FAERS Safety Report 21664183 (Version 1)
Quarter: 2022Q4

REPORT INFORMATION
  Report Type: Spontaneous
  Country: US (occurrence: None)
  Receive Date: 20221129
  Receipt Date: 20221129
  Transmission Date: 20230112
  Serious: No
  Sender: FDA-Public Use
  Company Number: None

PATIENT
  Age: 42 Year
  Sex: Female
  Weight: 114.31 kg

DRUGS (2)
  1. BENLYSTA [Suspect]
     Active Substance: BELIMUMAB
     Indication: Systemic lupus erythematosus
     Dosage: OTHER FREQUENCY : WKLY FOR 4 WKS;?
     Route: 058
     Dates: start: 202202
  2. MYCOPHENOLIC ACID [Suspect]
     Active Substance: MYCOPHENOLIC ACID
     Indication: Systemic lupus erythematosus
     Dosage: OTHER QUANTITY : TAKE 2 TABLETS;?FREQUENCY : TWICE A DAY;?
     Route: 048
     Dates: start: 202203

REACTIONS (2)
  - Peripheral swelling [None]
  - Thrombosis [None]
